FAERS Safety Report 9254879 (Version 5)
Quarter: 2014Q1

REPORT INFORMATION
  Report Type: Spontaneous
  Country: US (occurrence: US)
  Receive Date: 20130425
  Receipt Date: 20140131
  Transmission Date: 20141002
  Serious: Yes (Hospitalization, Other)
  Sender: FDA-Public Use
  Company Number: US-ASTRAZENECA-2013SE27643

PATIENT
  Age: 77 Year
  Sex: Female
  Weight: 47.6 kg

DRUGS (24)
  1. NEXIUM [Suspect]
     Indication: GASTROOESOPHAGEAL REFLUX DISEASE
     Route: 048
  2. NEXIUM [Suspect]
     Indication: SKELETAL INJURY
     Route: 048
  3. NEXIUM [Suspect]
     Indication: GASTROOESOPHAGEAL REFLUX DISEASE
     Route: 048
     Dates: start: 20060611
  4. NEXIUM [Suspect]
     Indication: SKELETAL INJURY
     Route: 048
     Dates: start: 20060611
  5. TAGAMET [Concomitant]
  6. ZAROXOLYN [Concomitant]
     Indication: OEDEMA
  7. LASIX [Concomitant]
     Indication: DEHYDRATION
  8. LASIX [Concomitant]
     Indication: FLUID IMBALANCE
  9. PREDNISONE [Concomitant]
  10. OXYCODONE [Concomitant]
  11. ATIVAN [Concomitant]
     Indication: ANXIETY
     Dates: start: 20080129
  12. CELEBREX [Concomitant]
  13. AMBIEN [Concomitant]
     Dates: start: 20060707
  14. CYMBALTA [Concomitant]
     Dates: start: 20060714
  15. PLAVIX [Concomitant]
  16. TOPAMAX [Concomitant]
  17. PERSANTINE [Concomitant]
     Dates: start: 20060718
  18. PROMETHAZINE [Concomitant]
     Dates: start: 20060612
  19. VERAPAMIL [Concomitant]
     Dates: start: 20060702
  20. CELEXA [Concomitant]
  21. SYNTHROID [Concomitant]
  22. KLOR-CON [Concomitant]
  23. TALWIN [Concomitant]
     Dates: start: 20060606
  24. PERCODAN [Concomitant]

REACTIONS (22)
  - Hip fracture [Unknown]
  - Wrist fracture [Unknown]
  - Neoplasm malignant [Unknown]
  - Head injury [Unknown]
  - Rib fracture [Unknown]
  - Osteoporosis [Unknown]
  - Bone disorder [Unknown]
  - Cataract [Unknown]
  - Cardiovascular disorder [Unknown]
  - Ankylosing spondylitis [Unknown]
  - Anorexia nervosa [Unknown]
  - Arthritis [Unknown]
  - Hypothyroidism [Unknown]
  - Rheumatoid arthritis [Unknown]
  - Aortic disorder [Unknown]
  - Osteoarthritis [Unknown]
  - Spinal fracture [Unknown]
  - Compression fracture [Unknown]
  - Depression [Unknown]
  - Meniscal degeneration [Unknown]
  - Chondromalacia [Unknown]
  - Osteoarthritis [Unknown]
